FAERS Safety Report 7726838-0 (Version None)
Quarter: 2011Q3

REPORT INFORMATION
  Report Type: 
  Country: None (occurrence: None)
  Receive Date: 20110902
  Receipt Date: 20110829
  Transmission Date: 20111222
  Serious: Yes (Other)
  Sender: FDA-Public Use
  Company Number: DE-GLAXOSMITHKLINE-D0072543A

PATIENT
  Sex: Female

DRUGS (1)
  1. TROBALT [Suspect]
     Indication: CONVULSION
     Route: 048
     Dates: start: 20110101, end: 20110101

REACTIONS (2)
  - DRUG WITHDRAWAL CONVULSIONS [None]
  - DRUG INEFFECTIVE [None]
